FAERS Safety Report 19137579 (Version 12)
Quarter: 2023Q2

REPORT INFORMATION
  Report Type: Report from Study
  Country: JP (occurrence: JP)
  Receive Date: 20210415
  Receipt Date: 20230607
  Transmission Date: 20230722
  Serious: Yes (Death, Hospitalization, Other)
  Sender: FDA-Public Use
  Company Number: JP-ABBVIE-20K-087-3570955-00

PATIENT
  Sex: Female

DRUGS (2)
  1. CARBIDOPA\LEVODOPA [Suspect]
     Active Substance: CARBIDOPA\LEVODOPA
     Indication: Parkinson^s disease
     Route: 050
     Dates: start: 201902, end: 202103
  2. CARBIDOPA\LEVODOPA [Suspect]
     Active Substance: CARBIDOPA\LEVODOPA

REACTIONS (25)
  - Asphyxia [Fatal]
  - Respiratory failure [Unknown]
  - Parkinson^s disease [Unknown]
  - Cardiac arrest [Recovering/Resolving]
  - Sputum retention [Unknown]
  - Loss of consciousness [Unknown]
  - Cerebral disorder [Not Recovered/Not Resolved]
  - Hospitalisation [Unknown]
  - Dyspnoea [Unknown]
  - Productive cough [Unknown]
  - General physical condition abnormal [Unknown]
  - Product prescribing error [Unknown]
  - Device use issue [Unknown]
  - Feeding disorder [Unknown]
  - Weight decreased [Unknown]
  - Fall [Unknown]
  - Stoma site discharge [Unknown]
  - Stoma site extravasation [Recovered/Resolved]
  - Stoma site inflammation [Recovered/Resolved]
  - Stoma site pruritus [Recovered/Resolved]
  - Stoma site erythema [Recovered/Resolved]
  - Stoma site erythema [Unknown]
  - Stoma site pain [Recovered/Resolved]
  - Stoma site pain [Recovered/Resolved]
  - Bedridden [Not Recovered/Not Resolved]

NARRATIVE: CASE EVENT DATE: 20200101
